FAERS Safety Report 9384683 (Version 2)
Quarter: 2013Q3

REPORT INFORMATION
  Report Type: Spontaneous
  Country: BR (occurrence: BR)
  Receive Date: 20130705
  Receipt Date: 20130905
  Transmission Date: 20140515
  Serious: Yes (Death, Hospitalization)
  Sender: FDA-Public Use
  Company Number: BR-SANOFI-AVENTIS-2013SA066920

PATIENT
  Sex: Female

DRUGS (3)
  1. LANTUS [Suspect]
     Indication: DIABETES MELLITUS
     Route: 058
     Dates: start: 2001, end: 20060428
  2. DEVICE NOS [Concomitant]
     Indication: DEVICE THERAPY
  3. GLIFAGE [Concomitant]
     Indication: HYPERGLYCAEMIA
     Route: 048
     Dates: start: 2001, end: 20060428

REACTIONS (1)
  - Lung disorder [Fatal]
